FAERS Safety Report 19691968 (Version 1)
Quarter: 2021Q3

REPORT INFORMATION
  Report Type: Spontaneous
  Country: NL (occurrence: NL)
  Receive Date: 20210812
  Receipt Date: 20210812
  Transmission Date: 20211014
  Serious: Yes (Hospitalization)
  Sender: FDA-Public Use
  Company Number: NL-TEVA-2021-NL-1939733

PATIENT
  Age: 27 Year
  Sex: Female
  Weight: 100 kg

DRUGS (2)
  1. FOLINEZUUR CAPSULE 15MG / BRAND NAME NOT SPECIFIED [Concomitant]
     Dosage: 15 MG (MILLIGRAM),THERAPY START DATE: ASKU,THERAPY END DATE:ASKU
  2. METHOTREXAAT INJVLST 50MG/ML / BRAND NAME NOT SPECIFIED [Suspect]
     Active Substance: METHOTREXATE
     Indication: GESTATIONAL TROPHOBLASTIC TUMOUR
     Dosage: UNIT DOSE :400 MG ,1MG/KG (=100MG) ON DAY  1,3,5,7 OF THE 2?WEEK COURSE (INTRAMUSCULAR)
     Dates: start: 20210625, end: 20210715

REACTIONS (1)
  - Peritonitis [Recovering/Resolving]

NARRATIVE: CASE EVENT DATE: 20210715
